FAERS Safety Report 15822953 (Version 1)
Quarter: 2019Q1

REPORT INFORMATION
  Report Type: Report from Study
  Country: ZA (occurrence: ZA)
  Receive Date: 20190114
  Receipt Date: 20190114
  Transmission Date: 20190417
  Serious: Yes (Life-Threatening, Hospitalization, Disabling)
  Sender: FDA-Public Use
  Company Number: ZA-SA-2018SA325008

PATIENT
  Age: 70 Year
  Sex: Male

DRUGS (7)
  1. INSULIN GLULISINE [Suspect]
     Active Substance: INSULIN GLULISINE
     Dosage: 15 U, TID (BEFORE LUNCH, SUPPER AND BREAKFAST)
     Dates: start: 20181107
  2. ATORVASTATIN [Concomitant]
     Active Substance: ATORVASTATIN
     Dosage: 80 MG, QD
     Dates: start: 20181107
  3. BILOCOR [Concomitant]
     Active Substance: BISOPROLOL FUMARATE
     Dosage: 2.5 MG, QD BEFORE BREAKFAST
     Dates: start: 20181107
  4. TOUJEO [Suspect]
     Active Substance: INSULIN GLARGINE
     Dosage: 30 U, HS
     Dates: start: 20181102
  5. TREPILINE [AMITRIPTYLINE HYDROCHLORIDE] [Concomitant]
     Active Substance: AMITRIPTYLINE HYDROCHLORIDE
     Dosage: 50 MG, HS AT BEDTIME
     Dates: start: 20181107
  6. PRADAXA [Concomitant]
     Active Substance: DABIGATRAN ETEXILATE MESYLATE
     Dosage: 150 MG, BID AT BEFROE SUPPER AND BEFORE BREAKFATS
     Dates: start: 20181107
  7. CLOPIDOGREL [Concomitant]
     Active Substance: CLOPIDOGREL BISULFATE
     Dosage: 75 MG, QD (BEFORE BREAKFAST)
     Dates: start: 20181107

REACTIONS (4)
  - Glycosylated haemoglobin increased [Unknown]
  - Localised infection [Not Recovered/Not Resolved]
  - Toe amputation [Unknown]
  - Gait disturbance [Unknown]

NARRATIVE: CASE EVENT DATE: 20181123
